FAERS Safety Report 18739951 (Version 1)
Quarter: 2021Q1

REPORT INFORMATION
  Report Type: Spontaneous
  Country: US (occurrence: US)
  Receive Date: 20210113
  Receipt Date: 20210113
  Transmission Date: 20210419
  Serious: No
  Sender: FDA-Public Use
  Company Number: None

PATIENT

DRUGS (1)
  1. GLUTAVITC IV SKIN LIGHTENING 1100MG [Suspect]
     Active Substance: GLUTATHIONE
     Indication: SKIN DISCOLOURATION
     Dosage: ?          OTHER FREQUENCY:ONCE;?
     Route: 030

REACTIONS (3)
  - Tremor [None]
  - Pyrexia [None]
  - Syncope [None]

NARRATIVE: CASE EVENT DATE: 20210113
